FAERS Safety Report 8633234 (Version 3)
Quarter: 2013Q3

REPORT INFORMATION
  Report Type: Report from Study
  Country: JP (occurrence: JP)
  Receive Date: 20120625
  Receipt Date: 20130918
  Transmission Date: 20140515
  Serious: Yes (Hospitalization)
  Sender: FDA-Public Use
  Company Number: JP-PFIZER INC-2012150503

PATIENT
  Age: 81 Year
  Sex: Male

DRUGS (13)
  1. ESTRACYT [Suspect]
     Indication: PROSTATE CANCER
     Dosage: UNK
     Route: 048
     Dates: start: 20110314, end: 20110412
  2. ESTRACYT [Suspect]
     Dosage: 156.7 MG, 1X/DAY
     Route: 048
     Dates: start: 20110630, end: 20110728
  3. ESTRACYT [Suspect]
     Dosage: 313.4 MG, 1X/DAY
     Route: 048
     Dates: start: 20110729, end: 20110818
  4. BAYASPIRIN [Concomitant]
     Dosage: UNK
  5. WARFARIN [Concomitant]
     Dosage: UNK
  6. WARFARIN [Concomitant]
     Dosage: UNK
     Dates: start: 20110418
  7. WARFARIN [Concomitant]
     Dosage: UNK
     Dates: start: 20110820
  8. NU LOTAN [Concomitant]
     Dosage: UNK
  9. MEVALOTIN [Concomitant]
     Dosage: UNK
  10. NITRODERM TTS [Concomitant]
     Dosage: UNK
  11. ITOROL [Concomitant]
     Dosage: UNK
  12. SEFIROM [Concomitant]
     Dosage: UNK
     Dates: start: 20110411, end: 20110412
  13. LASIX [Concomitant]
     Dosage: UNK
     Dates: start: 20110412, end: 20110413

REACTIONS (6)
  - Interstitial lung disease [Recovered/Resolved]
  - Coagulation time prolonged [Recovered/Resolved]
  - Cardiac failure congestive [Recovered/Resolved]
  - Interstitial lung disease [Recovered/Resolved]
  - Coagulation time prolonged [Recovered/Resolved]
  - Cardiac failure congestive [Recovered/Resolved]
